FAERS Safety Report 8424227 (Version 2)
Quarter: 2012Q4

REPORT INFORMATION
  Report Type: 
  Country: US (occurrence: US)
  Receive Date: 20120224
  Receipt Date: 20121213
  Transmission Date: 20130627
  Serious: No
  Sender: FDA-Public Use
  Company Number: US-BRISTOL-MYERS SQUIBB COMPANY-16229973

PATIENT
  Age: 83 Year
  Sex: Female

DRUGS (8)
  1. METFORMIN HCL [Suspect]
     Indication: DIABETES MELLITUS
     Dosage: Started:Before 2004
     Route: 048
     Dates: start: 2004
  2. PERCOCET [Suspect]
     Dosage: 1 df: 5/325 Unit NOS
  3. PRAVACHOL [Suspect]
     Route: 048
  4. NIASPAN [Suspect]
     Indication: HYPERLIPIDAEMIA
     Route: 048
  5. ASPIRIN [Suspect]
  6. AMARYL [Suspect]
     Route: 048
  7. ARMOUR THYROID [Suspect]
  8. PRAVASTATINE [Concomitant]

REACTIONS (1)
  - Hepatic enzyme increased [Recovered/Resolved]
